FAERS Safety Report 8935297 (Version 2)
Quarter: 2013Q3

REPORT INFORMATION
  Report Type: Spontaneous
  Country: CU (occurrence: CU)
  Receive Date: 20121129
  Receipt Date: 20130904
  Transmission Date: 20140515
  Serious: Yes (Life-Threatening, Disabling, Other)
  Sender: FDA-Public Use
  Company Number: CU-GLAXOSMITHKLINE-A1003284A

PATIENT
  Sex: Female
  Weight: 56.5 kg

DRUGS (4)
  1. SERETIDE [Suspect]
     Indication: ASTHMA
     Dosage: 2PUFF PER DAY
     Route: 055
     Dates: start: 2003, end: 2003
  2. FERROUS SULPHATE [Concomitant]
  3. FOLIC ACID [Concomitant]
  4. VITAMIN C [Concomitant]

REACTIONS (39)
  - Suicidal ideation [Unknown]
  - Sjogren^s syndrome [Unknown]
  - Inflammation [Unknown]
  - Osteitis [Unknown]
  - Arthritis [Unknown]
  - Bone pain [Unknown]
  - Insomnia [Unknown]
  - Headache [Unknown]
  - Abdominal distension [Unknown]
  - Respiratory tract irritation [Unknown]
  - Flatulence [Unknown]
  - Gastritis [Unknown]
  - Myalgia [Unknown]
  - Alopecia [Unknown]
  - Weight decreased [Unknown]
  - Photophobia [Unknown]
  - Irritability [Unknown]
  - Menorrhagia [Unknown]
  - Arthralgia [Unknown]
  - Eye pain [Unknown]
  - Dry eye [Unknown]
  - Hypersensitivity [Unknown]
  - Arthralgia [Unknown]
  - Neck pain [Unknown]
  - Non-cardiac chest pain [Unknown]
  - Muscle spasms [Unknown]
  - Dyspnoea [Unknown]
  - Pruritus [Unknown]
  - Diarrhoea [Unknown]
  - Nausea [Unknown]
  - Adverse event [Unknown]
  - Fatigue [Unknown]
  - Asthenia [Unknown]
  - Oesophagitis [Unknown]
  - Abdominal pain upper [Unknown]
  - Dyspepsia [Unknown]
  - Asthmatic crisis [Unknown]
  - Paraesthesia [Unknown]
  - Rheumatoid factor increased [Unknown]
